FAERS Safety Report 25831191 (Version 2)
Quarter: 2025Q3

REPORT INFORMATION
  Report Type: Spontaneous
  Country: CN (occurrence: CN)
  Receive Date: 20250922
  Receipt Date: 20250925
  Transmission Date: 20251021
  Serious: Yes (Hospitalization, Other)
  Sender: MACLEODS
  Company Number: CN-MACLEODS PHARMA-MAC2025055311

PATIENT

DRUGS (2)
  1. CLOBETASOL [Suspect]
     Active Substance: CLOBETASOL
     Indication: Dermatitis
     Dosage: 0.05%
     Route: 061
     Dates: start: 202504
  2. TRETINOIN [Suspect]
     Active Substance: TRETINOIN
     Indication: Dermatitis
     Dosage: 0.025 %
     Route: 061
     Dates: start: 202504

REACTIONS (4)
  - Dermatitis contact [Recovering/Resolving]
  - Dermatitis [Recovering/Resolving]
  - Condition aggravated [Recovering/Resolving]
  - Intentional product misuse [Recovering/Resolving]

NARRATIVE: CASE EVENT DATE: 20250401
